FAERS Safety Report 12191429 (Version 3)
Quarter: 2017Q4

REPORT INFORMATION
  Report Type: Spontaneous
  Country: US (occurrence: US)
  Receive Date: 20160318
  Receipt Date: 20171027
  Transmission Date: 20180320
  Serious: Yes (Hospitalization)
  Sender: FDA-Public Use
  Company Number: US-BAXTER-2016BAX010412

PATIENT
  Sex: Male

DRUGS (1)
  1. 0.9% SODIUM CHLORIDE IRRIGATION, USP [Suspect]
     Active Substance: SODIUM CHLORIDE
     Indication: IRRIGATION THERAPY
     Route: 065
     Dates: start: 201512

REACTIONS (3)
  - Product use issue [Unknown]
  - Rash [Unknown]
  - Bacterial infection [Unknown]

NARRATIVE: CASE EVENT DATE: 201512
